FAERS Safety Report 14554663 (Version 1)
Quarter: 2018Q1

REPORT INFORMATION
  Report Type: Spontaneous
  Country: US (occurrence: US)
  Receive Date: 20180220
  Receipt Date: 20180220
  Transmission Date: 20180509
  Serious: No
  Sender: FDA-Public Use
  Company Number: US-CUMBERLAND PHARMACEUTICALS INC.-2042319

PATIENT
  Age: 40 Year
  Sex: Male

DRUGS (2)
  1. TORADOL [Concomitant]
     Active Substance: KETOROLAC TROMETHAMINE
  2. CALDOLOR [Suspect]
     Active Substance: IBUPROFEN
     Route: 042
     Dates: start: 20180121, end: 20180121

REACTIONS (1)
  - Phlebitis [Recovered/Resolved]

NARRATIVE: CASE EVENT DATE: 20180121
